FAERS Safety Report 4831280-6 (Version None)
Quarter: 2005Q4

REPORT INFORMATION
  Report Type: 
  Country: None (occurrence: None)
  Receive Date: 20051114
  Receipt Date: 20051101
  Transmission Date: 20060501
  Serious: Yes (Life-Threatening, Hospitalization)
  Sender: FDA-Public Use
  Company Number: GBS050918391

PATIENT
  Age: 44 Year
  Sex: Male

DRUGS (4)
  1. OLANZAPINE [Suspect]
     Indication: MOOD SWINGS
     Dosage: 10 MG
     Dates: start: 20050906, end: 20050906
  2. VITAMIN B NOS [Concomitant]
  3. THIAMINE [Concomitant]
  4. ASCORBIC ACID [Concomitant]

REACTIONS (8)
  - BALANCE DISORDER [None]
  - CONFUSIONAL STATE [None]
  - DRUG INEFFECTIVE [None]
  - DYSARTHRIA [None]
  - LOSS OF CONSCIOUSNESS [None]
  - MALAISE [None]
  - MIOSIS [None]
  - SOMNOLENCE [None]
